FAERS Safety Report 6296009-6 (Version None)
Quarter: 2009Q3

REPORT INFORMATION
  Report Type: 
  Country: None (occurrence: None)
  Receive Date: 20090804
  Receipt Date: 20090720
  Transmission Date: 20100115
  Serious: Yes (Other)
  Sender: FDA-Public Use
  Company Number: AU-BRISTOL-MYERS SQUIBB COMPANY-14630388

PATIENT
  Age: 40 Year
  Sex: Female

DRUGS (1)
  1. ENTECAVIR [Suspect]
     Indication: HEPATITIS B
     Dosage: INCREASED TO 1MG ON 08AUG07
     Route: 048
     Dates: start: 20060808

REACTIONS (2)
  - DRUG RESISTANCE [None]
  - HEPATITIS B DNA INCREASED [None]
